FAERS Safety Report 25682585 (Version 3)
Quarter: 2025Q4

REPORT INFORMATION
  Report Type: Report from Study
  Country: EU (occurrence: EU)
  Receive Date: 20250814
  Receipt Date: 20251014
  Transmission Date: 20260118
  Serious: Yes (Hospitalization, Other)
  Sender: TEVA
  Company Number: EU-002147023-NVSC2020DE188982

PATIENT
  Sex: Female
  Weight: 100 kg

DRUGS (10)
  1. ANASTROZOLE [Suspect]
     Active Substance: ANASTROZOLE
     Indication: Breast cancer metastatic
     Dosage: 1 MG, QD
     Route: 048
     Dates: start: 20190104, end: 20210301
  2. XGEVA [Suspect]
     Active Substance: DENOSUMAB
     Indication: Product used for unknown indication
     Dosage: UNK
     Route: 065
  3. FULVESTRANT [Suspect]
     Active Substance: FULVESTRANT
     Indication: Breast cancer metastatic
     Dosage: 500 MG, Q4W
     Route: 030
     Dates: start: 20220906
  4. FULVESTRANT [Suspect]
     Active Substance: FULVESTRANT
     Indication: Breast cancer metastatic
     Dosage: 500 MG, QMO
     Route: 030
     Dates: start: 20210302, end: 20220905
  5. LETROZOLE [Suspect]
     Active Substance: LETROZOLE
     Indication: Breast cancer metastatic
     Route: 048
     Dates: end: 20220905
  6. LETROZOLE [Suspect]
     Active Substance: LETROZOLE
     Indication: Breast cancer metastatic
     Route: 048
     Dates: start: 20181127, end: 20190103
  7. LETROZOLE [Suspect]
     Active Substance: LETROZOLE
     Indication: Breast cancer metastatic
     Route: 048
     Dates: start: 20220906
  8. KISQALI [Suspect]
     Active Substance: RIBOCICLIB SUCCINATE
     Indication: Breast cancer metastatic
     Dosage: 600 MG, (MG ADMINISTRATION SCHEME 21 DAYS INTAKE, 7 DAYS PAUSE)
     Route: 048
     Dates: start: 20220906
  9. KISQALI [Suspect]
     Active Substance: RIBOCICLIB SUCCINATE
     Indication: Breast cancer metastatic
     Dosage: 600 MG, (MG ADMINISTRATION SCHEME 21 DAYS INTAKE, 7 DAYS PAUSE)
     Route: 048
     Dates: start: 20210302, end: 20220905
  10. KISQALI [Suspect]
     Active Substance: RIBOCICLIB SUCCINATE
     Indication: Breast cancer metastatic
     Dosage: 600 MG, (MG ADMINISTRATION SCHEME 21 DAYS INTAKE, 7 DAYS PAUSE)
     Route: 048
     Dates: start: 20181127, end: 20210301

REACTIONS (5)
  - Osteonecrosis of jaw [Recovered/Resolved]
  - Carbohydrate antigen 15-3 increased [Not Recovered/Not Resolved]
  - Osteonecrosis of jaw [Recovered/Resolved]
  - Toothache [Recovered/Resolved]
  - Arthralgia [Recovered/Resolved]

NARRATIVE: CASE EVENT DATE: 20190101
